FAERS Safety Report 9213234 (Version 1)
Quarter: 2013Q2

REPORT INFORMATION
  Report Type: Spontaneous
  Country: FR (occurrence: FR)
  Receive Date: 20130405
  Receipt Date: 20130405
  Transmission Date: 20140414
  Serious: Yes (Other)
  Sender: FDA-Public Use
  Company Number: FR-JNJFOC-20130318771

PATIENT
  Age: 21 Year
  Sex: Female

DRUGS (2)
  1. IXPRIM [Suspect]
     Indication: MUSCLE SPASMS
     Route: 048
     Dates: start: 20130219, end: 20130223
  2. TETRAZEPAM [Suspect]
     Indication: MUSCLE SPASMS
     Route: 048
     Dates: start: 20130219, end: 20130223

REACTIONS (1)
  - Toxic skin eruption [Recovering/Resolving]
